FAERS Safety Report 6255794-X (Version None)
Quarter: 2009Q3

REPORT INFORMATION
  Report Type: 
  Country: None (occurrence: None)
  Receive Date: 20090703
  Receipt Date: 20090623
  Transmission Date: 20100115
  Serious: Yes (Other)
  Sender: FDA-Public Use
  Company Number: US-JNJCH-2009017832

PATIENT
  Age: 59 Year
  Sex: Male

DRUGS (1)
  1. ASPIRIN [Suspect]
     Indication: DRUG USE FOR UNKNOWN INDICATION
     Dosage: TEXT:UNSPECIFIED
     Route: 065

REACTIONS (2)
  - BLOOD IMMUNOGLOBULIN E INCREASED [None]
  - DYSPNOEA [None]
